FAERS Safety Report 5921463-6 (Version None)
Quarter: 2008Q4

REPORT INFORMATION
  Report Type: 
  Country: None (occurrence: None)
  Receive Date: 20081016
  Receipt Date: 20081016
  Transmission Date: 20090506
  Serious: No
  Sender: FDA-Public Use
  Company Number: None

PATIENT
  Age: 3 Year
  Sex: Male
  Weight: 18 kg

DRUGS (1)
  1. ALPHANATE [Suspect]
     Indication: HAEMOPHILIA
     Dosage: 3870 UNITS DAILY IV BOLUS
     Route: 040
     Dates: start: 20081002, end: 20081014

REACTIONS (1)
  - PRODUCT QUALITY ISSUE [None]
